FAERS Safety Report 9666233 (Version 3)
Quarter: 2013Q4

REPORT INFORMATION
  Report Type: Report from Study
  Country: US (occurrence: US)
  Receive Date: 20131104
  Receipt Date: 20131111
  Transmission Date: 20140711
  Serious: Yes (Hospitalization)
  Sender: FDA-Public Use
  Company Number: US-ROCHE-1291446

PATIENT
  Age: 53 Year
  Sex: Male
  Weight: 76.3 kg

DRUGS (21)
  1. RITUXIMAB [Suspect]
     Indication: ACUTE MYELOID LEUKAEMIA
     Dosage: LAST DOSE GIVEN ON 12/SEP/2013
     Route: 042
     Dates: start: 201212
  2. RITUXIMAB [Suspect]
     Indication: CHRONIC GRAFT VERSUS HOST DISEASE
  3. ACYCLOVIR [Concomitant]
     Route: 065
  4. ANDROGEL [Concomitant]
     Dosage: 1% TRANSDERMAL PACKET, 2 PACKETS DAILY AS DIRECTED.
     Route: 065
  5. BIOTENE MOUTHWASH [Concomitant]
     Dosage: SWISH AND APIT AS NEEDED
     Route: 065
  6. COLACE [Concomitant]
     Indication: CONSTIPATION
     Route: 048
  7. COUMADIN [Concomitant]
     Route: 048
  8. CYCLOBENZAPRINE [Concomitant]
     Indication: MUSCLE SPASMS
     Route: 065
  9. DAPSONE [Concomitant]
  10. DDAVP [Concomitant]
     Route: 048
  11. DEXAMETHASONE [Concomitant]
     Route: 065
  12. LOVENOX [Concomitant]
     Dosage: FOR INJECTION UNDER THE SKIN.
     Route: 065
  13. ATIVAN [Concomitant]
     Indication: NAUSEA
     Route: 065
  14. NOXAFIL [Concomitant]
     Route: 065
  15. NOXAFIL [Concomitant]
     Dosage: 200 MG/ 5 ML,  10 ML
     Route: 048
  16. OS-CAL [Concomitant]
     Dosage: 500/200 UNITS
     Route: 048
  17. PROTONIX (OMEPRAZOLE) [Concomitant]
     Route: 048
  18. SYNTHROID [Concomitant]
     Route: 048
  19. TUSSIONEX (UNITED STATES) [Concomitant]
     Indication: COUGH
     Dosage: 8/10 MG/5 ML
     Route: 048
  20. LEVOTHYROXINE [Concomitant]
  21. PENTAMIDINE [Concomitant]
     Dosage: INHALATION
     Route: 065
     Dates: start: 20131023

REACTIONS (2)
  - Pleural effusion [Unknown]
  - Hypoxia [Unknown]
